FAERS Safety Report 24861970 (Version 2)
Quarter: 2025Q1

REPORT INFORMATION
  Report Type: Spontaneous
  Country: US (occurrence: US)
  Receive Date: 20250120
  Receipt Date: 20250310
  Transmission Date: 20250408
  Serious: Yes (Other)
  Sender: MERCK SHARP & DOHME LLC
  Company Number: US-009507513-2501USA004502

PATIENT
  Age: 60 Year
  Sex: Male

DRUGS (8)
  1. KEYTRUDA [Suspect]
     Active Substance: PEMBROLIZUMAB
     Indication: Squamous cell carcinoma of head and neck
     Dosage: DOSE DESCRIPTION : UNK UNK, Q3W
     Route: 042
     Dates: start: 20231204
  2. KEYTRUDA [Suspect]
     Active Substance: PEMBROLIZUMAB
     Indication: Squamous cell carcinoma of head and neck
     Dosage: DOSE DESCRIPTION : UNK UNK, Q3W
     Route: 042
     Dates: start: 20240129
  3. KEYTRUDA [Suspect]
     Active Substance: PEMBROLIZUMAB
     Indication: Squamous cell carcinoma of head and neck
     Dosage: DOSE DESCRIPTION : UNK UNK, Q3W
     Route: 042
     Dates: start: 20241029
  4. KEYTRUDA [Suspect]
     Active Substance: PEMBROLIZUMAB
     Indication: Squamous cell carcinoma of head and neck
     Dosage: DOSE DESCRIPTION : UNK UNK, Q3W
     Route: 042
     Dates: start: 20241231
  5. KEYTRUDA [Suspect]
     Active Substance: PEMBROLIZUMAB
     Indication: Squamous cell carcinoma of head and neck
     Dosage: DOSE DESCRIPTION : UNK UNK, Q3W
     Route: 042
     Dates: start: 20250211
  6. KEYTRUDA [Suspect]
     Active Substance: PEMBROLIZUMAB
     Indication: Squamous cell carcinoma of head and neck
     Dosage: DOSE DESCRIPTION : UNK UNK, Q3W
     Route: 042
     Dates: start: 20241231
  7. CISPLATIN [Suspect]
     Active Substance: CISPLATIN
     Indication: Squamous cell carcinoma of head and neck
     Dates: start: 20231204, end: 202402
  8. XELODA [Suspect]
     Active Substance: CAPECITABINE
     Indication: Colon cancer

REACTIONS (10)
  - Colon cancer [Recovered/Resolved]
  - Mucosal inflammation [Recovering/Resolving]
  - Product use issue [Unknown]
  - Erythema [Unknown]
  - Fatigue [Unknown]
  - Constipation [Unknown]
  - Dry mouth [Unknown]
  - Dry skin [Unknown]
  - Arthralgia [Recovering/Resolving]
  - Diarrhoea [Unknown]

NARRATIVE: CASE EVENT DATE: 20231204
